FAERS Safety Report 8935282 (Version 2)
Quarter: 2012Q4

REPORT INFORMATION
  Report Type: 
  Country: CA (occurrence: CA)
  Receive Date: 20121129
  Receipt Date: 20121219
  Transmission Date: 20130627
  Serious: Yes (Other)
  Sender: FDA-Public Use
  Company Number: CA-NAPPMUNDI-CAN-2012-0003539

PATIENT
  Sex: Male

DRUGS (2)
  1. HYDROMORPH CONTIN 30 MG [Suspect]
     Indication: COMPARTMENT SYNDROME
     Dosage: 60 mg, bid (am + hs)
  2. HYDROMORPHONE HCL [Concomitant]
     Indication: PRODUCT USED FOR UNKNOWN INDICATION
     Dosage: 16 mg, UNK
     Route: 065

REACTIONS (10)
  - Drug dependence [Unknown]
  - Intentional drug misuse [Unknown]
  - Drug ineffective [Not Recovered/Not Resolved]
  - Emotional distress [Not Recovered/Not Resolved]
  - Vertigo [Not Recovered/Not Resolved]
  - Foaming at mouth [Unknown]
  - Vomiting [Not Recovered/Not Resolved]
  - Unevaluable event [Not Recovered/Not Resolved]
  - Product packaging issue [Not Recovered/Not Resolved]
  - Wrong technique in drug usage process [Unknown]
